FAERS Safety Report 22955149 (Version 2)
Quarter: 2023Q4

REPORT INFORMATION
  Report Type: Spontaneous
  Country: ES (occurrence: ES)
  Receive Date: 20230918
  Receipt Date: 20231219
  Transmission Date: 20240110
  Serious: Yes (Hospitalization)
  Sender: FDA-Public Use
  Company Number: None

PATIENT
  Age: 59 Year
  Sex: Female

DRUGS (10)
  1. OXYCODONE HYDROCHLORIDE [Interacting]
     Active Substance: OXYCODONE HYDROCHLORIDE
     Indication: Juvenile idiopathic arthritis
     Dosage: 1-0-0 AND IF REQUIRED 1-0-1 (POSSIBLE MEDICATION ERROR DUE TO UNCONTROLLED INTAKE)
     Route: 048
     Dates: start: 20220225, end: 20230626
  2. RIVOTRIL [Interacting]
     Active Substance: CLONAZEPAM
     Indication: Depression
     Dosage: 1 EVERY 8 HOURS
     Route: 048
     Dates: start: 2023, end: 20230629
  3. PRIALT [Interacting]
     Active Substance: ZICONOTIDE ACETATE
     Indication: Juvenile idiopathic arthritis
     Dosage: ZICONATIDE FROM 12/14/22 1MCG/DAY 02/01/23 2 MCG/DAY } 03/31/23 1.9 MCG/DAY } 05/31/23 2,165 MCG/DAY
     Route: 037
     Dates: start: 20221214, end: 20230131
  4. PRIALT [Interacting]
     Active Substance: ZICONOTIDE ACETATE
     Dosage: 1.9 MILLIGRAM, Q24H
     Route: 037
     Dates: start: 20230331, end: 20230530
  5. PRIALT [Interacting]
     Active Substance: ZICONOTIDE ACETATE
     Dosage: 2.16 MCG, Q24H
     Route: 037
     Dates: start: 20230531, end: 20230615
  6. PRIALT [Interacting]
     Active Substance: ZICONOTIDE ACETATE
     Dosage: 1.48 MCG, Q24H
     Route: 037
     Dates: start: 20230616, end: 20230629
  7. PRIALT [Interacting]
     Active Substance: ZICONOTIDE ACETATE
     Dosage: 2 MCG, Q24H
     Route: 037
     Dates: start: 20230201, end: 20230331
  8. MORPHINE [Interacting]
     Active Substance: MORPHINE
     Indication: Juvenile idiopathic arthritis
     Dosage: MORPHINE FROM 03/31/23 0.950 MG/DAY - 06/16/23 INCREASE TO 1.8 MG/DAY
     Route: 038
     Dates: start: 20230331, end: 20230615
  9. MORPHINE [Interacting]
     Active Substance: MORPHINE
     Dosage: 1.8 MILLIGRAM, Q24H
     Route: 065
     Dates: start: 20230616
  10. LORMETAZEPAM [Interacting]
     Active Substance: LORMETAZEPAM
     Indication: Depression
     Dosage: 1 PER DAY
     Route: 048
     Dates: start: 20230610, end: 20230626

REACTIONS (2)
  - Encephalopathy [Recovered/Resolved]
  - Confusional state [Recovered/Resolved]

NARRATIVE: CASE EVENT DATE: 20230616
